FAERS Safety Report 25971785 (Version 2)
Quarter: 2025Q4

REPORT INFORMATION
  Report Type: Report from Study
  Country: CN (occurrence: CN)
  Receive Date: 20251029
  Receipt Date: 20251204
  Transmission Date: 20260117
  Serious: Yes (Hospitalization)
  Sender: BAXTER
  Company Number: CN-BAXTER-2025BAX023050

PATIENT
  Age: 50 Year
  Sex: Male
  Weight: 81 kg

DRUGS (20)
  1. CYCLOPHOSPHAMIDE [Suspect]
     Active Substance: CYCLOPHOSPHAMIDE
     Indication: Chronic lymphocytic leukaemia
     Dosage: 507.5 MG, QD
     Route: 041
     Dates: start: 20240829, end: 20240829
  2. CYCLOPHOSPHAMIDE [Suspect]
     Active Substance: CYCLOPHOSPHAMIDE
     Dosage: 460 MG, QD
     Route: 041
     Dates: start: 20240903, end: 20240904
  3. CYCLOPHOSPHAMIDE [Suspect]
     Active Substance: CYCLOPHOSPHAMIDE
     Dosage: 437.7 MG, QD (CYCLE 2)
     Route: 041
     Dates: start: 20241001, end: 20241003
  4. CYCLOPHOSPHAMIDE [Suspect]
     Active Substance: CYCLOPHOSPHAMIDE
     Dosage: 437.7 MG, QD (CYCLE 3)
     Route: 041
     Dates: start: 20241029, end: 20241031
  5. CYCLOPHOSPHAMIDE [Suspect]
     Active Substance: CYCLOPHOSPHAMIDE
     Dosage: 437.5 MG, QD (CYCLE 4)
     Route: 041
     Dates: start: 20241127, end: 20241129
  6. CYCLOPHOSPHAMIDE [Suspect]
     Active Substance: CYCLOPHOSPHAMIDE
     Dosage: 437.5 MG, QD (CYCLE 5)
     Route: 041
     Dates: start: 20250113, end: 20250115
  7. CYCLOPHOSPHAMIDE [Suspect]
     Active Substance: CYCLOPHOSPHAMIDE
     Dosage: 437.5 MG, QD (CYCLE 6)
     Route: 041
     Dates: start: 20250311, end: 20250313
  8. RITUXIMAB [Suspect]
     Active Substance: RITUXIMAB
     Indication: Chronic lymphocytic leukaemia
     Dosage: 761.25 MG (D1, CYCLE 1)
     Route: 041
     Dates: start: 20240829, end: 20240829
  9. RITUXIMAB [Suspect]
     Active Substance: RITUXIMAB
     Dosage: 875 MG (D1 CYCLE 2)
     Route: 041
     Dates: start: 20241001, end: 20241001
  10. RITUXIMAB [Suspect]
     Active Substance: RITUXIMAB
     Dosage: 875 MG (D1 CYCLE 3)
     Route: 041
     Dates: start: 20241029, end: 20241029
  11. RITUXIMAB [Suspect]
     Active Substance: RITUXIMAB
     Dosage: 875 MG (D1 CYCLE 4)
     Route: 041
     Dates: start: 20241127, end: 20241127
  12. RITUXIMAB [Suspect]
     Active Substance: RITUXIMAB
     Dosage: 875 MG (D1 CYCLE 5)
     Route: 041
     Dates: start: 20250113, end: 20250113
  13. RITUXIMAB [Suspect]
     Active Substance: RITUXIMAB
     Dosage: 875 MG (D1 CYCLE 6)
     Route: 041
     Dates: start: 20250311, end: 20250311
  14. FLUDARA [Suspect]
     Active Substance: FLUDARABINE PHOSPHATE
     Indication: Chronic lymphocytic leukaemia
     Dosage: 50.75 MG, QD
     Route: 041
     Dates: start: 20240829, end: 20240829
  15. FLUDARA [Suspect]
     Active Substance: FLUDARABINE PHOSPHATE
     Dosage: 46 MG, QD
     Route: 041
     Dates: start: 20240903, end: 20240904
  16. FLUDARA [Suspect]
     Active Substance: FLUDARABINE PHOSPHATE
     Dosage: 43.75 MG, QD (CYCLE 2)
     Route: 041
     Dates: start: 20241001, end: 20241003
  17. FLUDARA [Suspect]
     Active Substance: FLUDARABINE PHOSPHATE
     Dosage: 43.75 MG, QD (CYCLE 3)
     Route: 041
     Dates: start: 20241029, end: 20241031
  18. FLUDARA [Suspect]
     Active Substance: FLUDARABINE PHOSPHATE
     Dosage: 43.75 MG, QD (CYCLE 4)
     Route: 041
     Dates: start: 20241127, end: 20241129
  19. FLUDARA [Suspect]
     Active Substance: FLUDARABINE PHOSPHATE
     Dosage: 43.75 MG, QD (CYCLE 5)
     Route: 041
     Dates: start: 20250113, end: 20250115
  20. FLUDARA [Suspect]
     Active Substance: FLUDARABINE PHOSPHATE
     Dosage: 43.75 MG, QD (CYCLE 6)
     Route: 041
     Dates: start: 20250311, end: 20250313

REACTIONS (1)
  - Respiratory tract infection [Recovered/Resolved]

NARRATIVE: CASE EVENT DATE: 20251002
